FAERS Safety Report 25670711 (Version 1)
Quarter: 2025Q3

REPORT INFORMATION
  Report Type: Spontaneous
  Country: US (occurrence: None)
  Receive Date: 20250811
  Receipt Date: 20250811
  Transmission Date: 20251021
  Serious: Yes (Hospitalization)
  Sender: FDA-CTU
  Company Number: None

PATIENT
  Sex: Female

DRUGS (11)
  1. LENALIDOMIDE [Suspect]
     Active Substance: LENALIDOMIDE
     Indication: Plasma cell myeloma
     Dosage: OTHER FREQUENCY: CAPSULE BY MOUTH 1 TIME A DAY FOR 21 DAYS ON THEN 7 DAYS OFF
     Route: 048
     Dates: start: 20250712
  2. ASPIRIN [Concomitant]
     Active Substance: ASPIRIN
  3. DARZALEX [Concomitant]
     Active Substance: DARATUMUMAB
  4. HYDROCORTISONE [Concomitant]
     Active Substance: HYDROCORTISONE
  5. LEVOTHYROXINE SODIUM [Concomitant]
     Active Substance: LEVOTHYROXINE SODIUM
  6. BORTEZOMIB [Concomitant]
     Active Substance: BORTEZOMIB
  7. DEXAMETHASONE [Concomitant]
     Active Substance: DEXAMETHASONE
  8. FAMOTIDINE [Concomitant]
     Active Substance: FAMOTIDINE
  9. ACYCLOVIR [Concomitant]
     Active Substance: ACYCLOVIR
  10. METHYLPREDNISOLONE [Concomitant]
     Active Substance: METHYLPREDNISOLONE
  11. DIPHENHYDRAMINE HYDROCHLORIDE [Concomitant]
     Active Substance: DIPHENHYDRAMINE HYDROCHLORIDE

REACTIONS (3)
  - Pyrexia [None]
  - Neutrophil count decreased [None]
  - Therapy interrupted [None]
